FAERS Safety Report 8600998 (Version 3)
Quarter: 2012Q4

REPORT INFORMATION
  Report Type: Report from Study
  Country: FR (occurrence: FR)
  Receive Date: 20120606
  Receipt Date: 20121205
  Transmission Date: 20130627
  Serious: Yes (Hospitalization)
  Sender: FDA-Public Use
  Company Number: FR-NOVOPROD-337968

PATIENT
  Age: 36 Year
  Sex: Female
  Weight: 97 kg

DRUGS (7)
  1. LIRAGLUTIDE FLEXPEN [Suspect]
     Indication: TYPE 2 DIABETES MELLITUS
     Dosage: 1.2 mg, qd
     Route: 058
     Dates: start: 20110404, end: 20110913
  2. LIRAGLUTIDE FLEXPEN [Suspect]
     Dosage: 1.2 mg, qd
     Route: 058
     Dates: start: 20110913
  3. NOVONORM [Concomitant]
     Dosage: 3 mg, qd
     Route: 048
     Dates: start: 20060101
  4. STAGID [Concomitant]
     Dosage: 700 mg, qd
     Route: 048
     Dates: start: 20060101
  5. RIVOTRIL [Concomitant]
     Dosage: 5 drops, qd
     Route: 048
     Dates: start: 20090101
  6. ALEPSAL [Concomitant]
     Dosage: 50 mg, qd
     Route: 048
     Dates: start: 20090101
  7. LAMICTAL [Concomitant]
     Dosage: TWICE/PO
     Route: 048
     Dates: start: 20060101

REACTIONS (1)
  - Disease recurrence [Recovered/Resolved]
